FAERS Safety Report 8375561-0 (Version None)
Quarter: 2012Q1

REPORT INFORMATION
  Report Type: 
  Country: None (occurrence: None)
  Receive Date: 20120323
  Receipt Date: 20110131
  Transmission Date: 20120608
  Serious: Yes (Hospitalization, Other)
  Sender: FDA-Public Use
  Company Number: 163-21880-11020438

PATIENT
  Age: 82 Year
  Sex: Male

DRUGS (2)
  1. REVLIMID [Suspect]
     Indication: MULTIPLE MYELOMA
     Dosage: 10 MG, FOR 21 DAYS, PO, 15 MG, FOR 21 DAYS, PO
     Route: 048
     Dates: start: 20100401
  2. REVLIMID [Suspect]
     Indication: MULTIPLE MYELOMA
     Dosage: 10 MG, FOR 21 DAYS, PO, 15 MG, FOR 21 DAYS, PO
     Route: 048
     Dates: start: 20100801

REACTIONS (2)
  - FALL [None]
  - PELVIC FRACTURE [None]
